FAERS Safety Report 8373638-7 (Version None)
Quarter: 2012Q2

REPORT INFORMATION
  Report Type: 
  Country: None (occurrence: None)
  Receive Date: 20120521
  Receipt Date: 20120516
  Transmission Date: 20120825
  Serious: Yes (Life-Threatening, Hospitalization, Other)
  Sender: FDA-Public Use
  Company Number: DE-ASTRAZENECA-2012SE20033

PATIENT
  Age: 20495 Day
  Sex: Female

DRUGS (4)
  1. BISOPROLOL FUMARATE [Concomitant]
     Indication: ACUTE MYOCARDIAL INFARCTION
     Route: 048
     Dates: start: 20120309
  2. ASPIRIN [Concomitant]
     Indication: ACUTE MYOCARDIAL INFARCTION
     Route: 048
     Dates: start: 20120309
  3. SIMVASTATIN [Concomitant]
     Indication: ACUTE MYOCARDIAL INFARCTION
     Route: 048
     Dates: start: 20120309
  4. BRILIQUE [Suspect]
     Indication: ACUTE MYOCARDIAL INFARCTION
     Route: 048
     Dates: start: 20120309, end: 20120314

REACTIONS (3)
  - THROMBOSIS IN DEVICE [None]
  - ACUTE MYOCARDIAL INFARCTION [None]
  - DRUG INEFFECTIVE [None]
